FAERS Safety Report 8603204-7 (Version None)
Quarter: 2012Q3

REPORT INFORMATION
  Report Type: 
  Country: None (occurrence: None)
  Receive Date: 20120817
  Receipt Date: 20120810
  Transmission Date: 20120928
  Serious: Yes (Death)
  Sender: FDA-Public Use
  Company Number: RO-ROCHE-1099516

PATIENT
  Sex: Female
  Weight: 53 kg

DRUGS (1)
  1. AVASTIN [Suspect]
     Indication: METASTASIS
     Route: 042
     Dates: start: 20111108, end: 20120229

REACTIONS (2)
  - DEATH [None]
  - DEPRESSION [None]
